FAERS Safety Report 9870481 (Version 1)
Quarter: 2014Q1

REPORT INFORMATION
  Report Type: Spontaneous
  Country: KR (occurrence: KR)
  Receive Date: 20140205
  Receipt Date: 20140205
  Transmission Date: 20141002
  Serious: Yes (Other)
  Sender: FDA-Public Use
  Company Number: KR-PFIZER INC-2014031406

PATIENT
  Sex: Male

DRUGS (1)
  1. NEURONTIN [Suspect]
     Indication: HYPOAESTHESIA
     Dosage: 100 MG 3 CAPSULES PER DAY
     Route: 048
     Dates: start: 2013

REACTIONS (1)
  - Paralysis [Unknown]
